FAERS Safety Report 14187503 (Version 2)
Quarter: 2018Q1

REPORT INFORMATION
  Report Type: Spontaneous
  Country: BR (occurrence: BR)
  Receive Date: 20171114
  Receipt Date: 20180321
  Transmission Date: 20180508
  Serious: Yes (Other)
  Sender: FDA-Public Use
  Company Number: BR-ABBVIE-17P-020-2163265-00

PATIENT
  Sex: Male
  Weight: 80 kg

DRUGS (17)
  1. DEPAKOTE ER [Suspect]
     Active Substance: DIVALPROEX SODIUM
     Route: 048
     Dates: start: 2013
  2. RISPERIDONE. [Suspect]
     Active Substance: RISPERIDONE
     Indication: AGGRESSION
  3. OMEPRAZOLE. [Concomitant]
     Active Substance: OMEPRAZOLE
     Indication: PRODUCT USED FOR UNKNOWN INDICATION
  4. RISPERIDONE. [Suspect]
     Active Substance: RISPERIDONE
     Indication: AGGRESSION
     Route: 048
  5. SODIUM CHLORIDE. [Concomitant]
     Active Substance: SODIUM CHLORIDE
     Indication: PRODUCT USED FOR UNKNOWN INDICATION
  6. DEPAKOTE ER [Suspect]
     Active Substance: DIVALPROEX SODIUM
     Route: 048
  7. DEPAKOTE ER [Suspect]
     Active Substance: DIVALPROEX SODIUM
     Route: 048
  8. RIVOTRIL [Concomitant]
     Active Substance: CLONAZEPAM
     Indication: SEIZURE
     Route: 048
  9. PANTOPRAZOLE [Concomitant]
     Active Substance: PANTOPRAZOLE
     Indication: PRODUCT USED FOR UNKNOWN INDICATION
     Route: 048
  10. SILIMALON [Concomitant]
     Indication: PRODUCT USED FOR UNKNOWN INDICATION
  11. DEPAKOTE ER [Suspect]
     Active Substance: DIVALPROEX SODIUM
     Indication: SEIZURE
     Route: 048
     Dates: start: 20171106
  12. DEPAKENE [Suspect]
     Active Substance: VALPROIC ACID
     Indication: SEIZURE
     Route: 048
     Dates: start: 201705, end: 201706
  13. PHENOBARBITAL. [Suspect]
     Active Substance: PHENOBARBITAL
     Route: 048
  14. LAMITOR [Suspect]
     Active Substance: LAMOTRIGINE
     Indication: SEIZURE
     Route: 048
  15. DIGEPLUS [Concomitant]
     Indication: PRODUCT USED FOR UNKNOWN INDICATION
  16. DEPAKOTE ER [Suspect]
     Active Substance: DIVALPROEX SODIUM
     Route: 048
  17. PHENOBARBITAL. [Suspect]
     Active Substance: PHENOBARBITAL
     Indication: SEIZURE
     Route: 048
     Dates: start: 2013

REACTIONS (16)
  - Malaise [Not Recovered/Not Resolved]
  - Atrophy [Unknown]
  - Abdominal pain upper [Not Recovered/Not Resolved]
  - Seizure [Not Recovered/Not Resolved]
  - Underdose [Unknown]
  - Vomiting [Recovering/Resolving]
  - Ocular hyperaemia [Recovered/Resolved]
  - Gastritis [Not Recovered/Not Resolved]
  - Therapy cessation [Unknown]
  - Nausea [Not Recovered/Not Resolved]
  - Neck pain [Recovered/Resolved]
  - Nuchal rigidity [Not Recovered/Not Resolved]
  - Headache [Recovered/Resolved]
  - Gallbladder disorder [Unknown]
  - Intentional product misuse [Unknown]
  - Spleen disorder [Not Recovered/Not Resolved]

NARRATIVE: CASE EVENT DATE: 2013
